FAERS Safety Report 9214485 (Version 1)
Quarter: 2013Q2

REPORT INFORMATION
  Report Type: Report from Study
  Country: FR (occurrence: FR)
  Receive Date: 20130405
  Receipt Date: 20130405
  Transmission Date: 20140414
  Serious: Yes (Other)
  Sender: FDA-Public Use
  Company Number: FR-ROCHE-1209720

PATIENT
  Age: 78 Year
  Sex: Male

DRUGS (1)
  1. ALTEPLASE [Suspect]
     Indication: ISCHAEMIC STROKE
     Route: 013

REACTIONS (2)
  - Haemorrhagic transformation stroke [Unknown]
  - Blood brain barrier defect [Unknown]
